FAERS Safety Report 11661642 (Version 2)
Quarter: 2015Q4

REPORT INFORMATION
  Report Type: Spontaneous
  Country: US (occurrence: US)
  Receive Date: 20151026
  Receipt Date: 20151105
  Transmission Date: 20160304
  Serious: No
  Sender: FDA-Public Use
  Company Number: US-PFIZER INC-2015357805

PATIENT
  Sex: Male

DRUGS (1)
  1. VIAGRA [Suspect]
     Active Substance: SILDENAFIL CITRATE
     Dosage: UNK

REACTIONS (6)
  - Penile curvature [Unknown]
  - Erection increased [Unknown]
  - Premature ejaculation [Unknown]
  - Semen volume abnormal [Unknown]
  - Penile swelling [Unknown]
  - Pain [Unknown]
